FAERS Safety Report 4386741-3 (Version None)
Quarter: 2004Q2

REPORT INFORMATION
  Report Type: 
  Country: None (occurrence: None)
  Receive Date: 20040629
  Receipt Date: 20040622
  Transmission Date: 20050107
  Serious: Yes (Life-Threatening, Hospitalization, Other)
  Sender: FDA-Public Use
  Company Number: AE-MERCK-0406USA01966

PATIENT
  Age: 55 Year
  Sex: Male

DRUGS (5)
  1. ASPIRIN [Concomitant]
     Route: 065
  2. CAPTOPRIL MSD [Concomitant]
     Route: 065
  3. PLAVIX [Concomitant]
     Route: 065
  4. ISOMACK [Concomitant]
     Route: 065
  5. ZOCOR [Suspect]
     Route: 048

REACTIONS (1)
  - ANGINA UNSTABLE [None]
